FAERS Safety Report 24996744 (Version 1)
Quarter: 2025Q1

REPORT INFORMATION
  Report Type: Spontaneous
  Country: CA (occurrence: CA)
  Receive Date: 20250221
  Receipt Date: 20250221
  Transmission Date: 20250409
  Serious: Yes (Other)
  Sender: EMD SERONO INC
  Company Number: CA-Merck Healthcare KGaA-2025008529

PATIENT

DRUGS (2)
  1. MAVENCLAD [Suspect]
     Active Substance: CLADRIBINE
     Indication: Relapsing-remitting multiple sclerosis
  2. MAVENCLAD [Suspect]
     Active Substance: CLADRIBINE

REACTIONS (3)
  - Graves^ disease [Unknown]
  - Hyperthyroidism [Unknown]
  - General physical health deterioration [Unknown]
